FAERS Safety Report 9363324 (Version 1)
Quarter: 2013Q2

REPORT INFORMATION
  Report Type: Spontaneous
  Country: US (occurrence: None)
  Receive Date: 20130621
  Receipt Date: 20130621
  Transmission Date: 20140414
  Serious: No
  Sender: FDA-Public Use
  Company Number: None

PATIENT
  Age: 59 Year
  Sex: Female

DRUGS (4)
  1. STIVARGA [Suspect]
     Indication: COLON CANCER
     Route: 048
     Dates: start: 20121220, end: 20130620
  2. FLUTICASONE [Concomitant]
  3. ACYCLOVIR [Concomitant]
  4. LEVOTHYROXIN [Concomitant]

REACTIONS (1)
  - Drug ineffective [None]
